FAERS Safety Report 25540692 (Version 1)
Quarter: 2025Q3

REPORT INFORMATION
  Report Type: Spontaneous
  Country: US (occurrence: US)
  Receive Date: 20250710
  Receipt Date: 20250710
  Transmission Date: 20251021
  Serious: No
  Sender: MYLAN
  Company Number: US-MYLANLABS-2025M1055254

PATIENT
  Age: 77 Year
  Sex: Male

DRUGS (2)
  1. ATORVASTATIN CALCIUM [Interacting]
     Active Substance: ATORVASTATIN CALCIUM
     Indication: Product used for unknown indication
  2. PAXLOVID [Interacting]
     Active Substance: NIRMATRELVIR\RITONAVIR
     Indication: Product used for unknown indication

REACTIONS (1)
  - Labelled drug-drug interaction issue [Unknown]
